FAERS Safety Report 19811548 (Version 1)
Quarter: 2021Q3

REPORT INFORMATION
  Report Type: Spontaneous
  Country: US (occurrence: US)
  Receive Date: 20210910
  Receipt Date: 20210910
  Transmission Date: 20211014
  Serious: No
  Sender: FDA-Public Use
  Company Number: US-TEVA-2021-US-1950097

PATIENT
  Age: 7 Year
  Sex: Female

DRUGS (5)
  1. GUANFACINE HYDROCHLORIDE. [Suspect]
     Active Substance: GUANFACINE HYDROCHLORIDE
     Indication: BEHAVIOUR DISORDER
     Dosage: EXTENDED?RELEASE/ AT BEDTIME
     Route: 065
  2. MELATONIN [Concomitant]
     Active Substance: MELATONIN
  3. FOCALIN [Concomitant]
     Active Substance: DEXMETHYLPHENIDATE HYDROCHLORIDE
     Dosage: TAKING IN THE MORNING
  4. RITALIN [Concomitant]
     Active Substance: METHYLPHENIDATE HYDROCHLORIDE
     Dosage: AT 1 PM
  5. ABILIFY [Concomitant]
     Active Substance: ARIPIPRAZOLE

REACTIONS (1)
  - Drug ineffective [Not Recovered/Not Resolved]
